FAERS Safety Report 26101898 (Version 2)
Quarter: 2025Q4

REPORT INFORMATION
  Report Type: Spontaneous
  Country: RU (occurrence: RU)
  Receive Date: 20251128
  Receipt Date: 20251203
  Transmission Date: 20260119
  Serious: Yes (Other)
  Sender: ROCHE
  Company Number: RU-ROCHE-10000442308

PATIENT
  Age: 47 Year
  Sex: Female

DRUGS (7)
  1. TRASTUZUMAB [Suspect]
     Active Substance: TRASTUZUMAB
     Indication: Product used for unknown indication
     Dosage: DAY 1??LOADING DOSE 8 MG/KG
     Route: 042
     Dates: start: 202411, end: 20250220
  2. PERTUZUMAB [Suspect]
     Active Substance: PERTUZUMAB
     Indication: Product used for unknown indication
     Dosage: DAY 1
     Route: 042
     Dates: start: 202411, end: 20250220
  3. ADO-TRASTUZUMAB EMTANSINE [Suspect]
     Active Substance: ADO-TRASTUZUMAB EMTANSINE
     Indication: Product used for unknown indication
     Dosage: DAY 1; 21-DAY CYCLE, 6 CYCLES
     Route: 065
  4. ADO-TRASTUZUMAB EMTANSINE [Suspect]
     Active Substance: ADO-TRASTUZUMAB EMTANSINE
     Dosage: DAY 1; 21-DAY CYCLE, 6 CYCLES
     Route: 065
  5. DOCETAXEL [Suspect]
     Active Substance: DOCETAXEL
     Indication: Product used for unknown indication
     Dosage: DAY 1
     Route: 042
     Dates: start: 202411, end: 20250220
  6. PACLITAXEL [Suspect]
     Active Substance: PACLITAXEL
     Indication: Product used for unknown indication
     Dosage: 12 DOSED
     Route: 065
  7. TAMOXIFEN [Suspect]
     Active Substance: TAMOXIFEN
     Indication: Product used for unknown indication
     Route: 065
     Dates: start: 201907, end: 202404

REACTIONS (2)
  - Thrombocytopenia [Unknown]
  - Hepatotoxicity [Unknown]
